FAERS Safety Report 8779320 (Version 1)
Quarter: 2012Q4

REPORT INFORMATION
  Report Type: 
  Country: SE (occurrence: SE)
  Receive Date: 20120912
  Receipt Date: 20120912
  Transmission Date: 20130627
  Serious: Yes (Death)
  Sender: FDA-Public Use
  Company Number: SE-MYLANLABS-2012S1018120

PATIENT
  Age: 22 Year
  Sex: Male

DRUGS (3)
  1. BUPRENORPHINE [Suspect]
     Indication: ACCIDENTAL OVERDOSE
     Route: 065
  2. ALPRAZOLAM [Suspect]
     Indication: ACCIDENTAL OVERDOSE
     Route: 065
  3. DIAZEPAM [Concomitant]
     Route: 065

REACTIONS (2)
  - Toxicity to various agents [Fatal]
  - Accidental overdose [Fatal]
